FAERS Safety Report 4832412-6 (Version None)
Quarter: 2005Q4

REPORT INFORMATION
  Report Type: 
  Country: None (occurrence: None)
  Receive Date: 20051117
  Receipt Date: 20050912
  Transmission Date: 20060501
  Serious: Yes (Other)
  Sender: FDA-Public Use
  Company Number: 2005BH001633

PATIENT
  Age: 18 Year
  Sex: Female

DRUGS (1)
  1. LACTATED RINGER'S AND DEXTROSE 5% IN PLASTIC CONTAINER [Suspect]
     Dosage: 200 ML; IV
     Route: 042

REACTIONS (6)
  - CHEST DISCOMFORT [None]
  - CHEST PAIN [None]
  - COUGH [None]
  - DRUG EXPOSURE DURING PREGNANCY [None]
  - ERYTHEMA [None]
  - VOMITING [None]
